FAERS Safety Report 5375160-9 (Version None)
Quarter: 2007Q2

REPORT INFORMATION
  Report Type: 
  Country: None (occurrence: None)
  Receive Date: 20070629
  Receipt Date: 20070102
  Transmission Date: 20071010
  Serious: No
  Sender: FDA-Public Use
  Company Number: US-ASTRAZENECA-2007UW00085

PATIENT
  Age: 18 Year
  Sex: Female
  Weight: 52.5 kg

DRUGS (2)
  1. ZOLADEX [Suspect]
     Indication: ENDOMETRIOSIS
     Route: 058
     Dates: start: 20061101
  2. ADVIL LIQUI-GELS [Concomitant]

REACTIONS (2)
  - HOT FLUSH [None]
  - MUSCLE SPASMS [None]
